FAERS Safety Report 5785566-1 (Version None)
Quarter: 2008Q2

REPORT INFORMATION
  Report Type: 
  Country: None (occurrence: None)
  Receive Date: 20080605
  Receipt Date: 20080220
  Transmission Date: 20081010
  Serious: No
  Sender: FDA-Public Use
  Company Number: A0710723A

PATIENT
  Age: 58 Year
  Sex: Female

DRUGS (4)
  1. ALLI [Suspect]
     Indication: DRUG USE FOR UNKNOWN INDICATION
  2. PAXIL [Concomitant]
  3. NEXIUM [Concomitant]
  4. VYTORIN [Concomitant]

REACTIONS (1)
  - FREQUENT BOWEL MOVEMENTS [None]
